FAERS Safety Report 9134461 (Version 1)
Quarter: 2013Q1

REPORT INFORMATION
  Report Type: Spontaneous
  Country: US (occurrence: US)
  Receive Date: 20130304
  Receipt Date: 20130304
  Transmission Date: 20140127
  Serious: No
  Sender: FDA-Public Use
  Company Number: US-ENDO PHARMACEUTICALS INC.-VALS20100126

PATIENT
  Age: 52 Year
  Sex: Male
  Weight: 101.7 kg

DRUGS (2)
  1. VALSTAR [Suspect]
     Indication: BLADDER CANCER
     Dosage: 45 CC ONCE
     Route: 043
     Dates: start: 20101015, end: 20101015
  2. VALSTAR [Suspect]
     Dosage: UNK
     Route: 043
     Dates: start: 20101022, end: 20101022

REACTIONS (1)
  - Underdose [Recovered/Resolved]
